FAERS Safety Report 4819208-6 (Version None)
Quarter: 2005Q4

REPORT INFORMATION
  Report Type: 
  Country: None (occurrence: None)
  Receive Date: 20051103
  Receipt Date: 20051025
  Transmission Date: 20060501
  Serious: Yes (Hospitalization)
  Sender: FDA-Public Use
  Company Number: 420993

PATIENT
  Age: 68 Year
  Sex: Female

DRUGS (10)
  1. CARVEDILOL [Suspect]
     Dosage: 2.5MG PER DAY
     Route: 048
     Dates: start: 20041118, end: 20050107
  2. LASIX [Concomitant]
     Dates: start: 20041112
  3. ALDACTONE [Concomitant]
     Dates: start: 20041112, end: 20041121
  4. DIGOSIN [Concomitant]
     Dates: start: 20041112, end: 20041209
  5. LOXONIN [Concomitant]
     Dates: start: 20041112, end: 20041209
  6. AMIODARONE [Concomitant]
     Dates: start: 20041121
  7. ZANTAC [Concomitant]
     Dates: start: 20041112, end: 20041202
  8. ALLOPURINOL [Concomitant]
     Dates: start: 20041130
  9. MUCOSTA [Concomitant]
     Dates: start: 20041203, end: 20041209
  10. MAGNESIUM OXIDE [Concomitant]
     Dates: start: 20041210

REACTIONS (1)
  - CARDIAC FAILURE [None]
